FAERS Safety Report 6673517-7 (Version None)
Quarter: 2010Q1

REPORT INFORMATION
  Report Type: 
  Country: None (occurrence: None)
  Receive Date: 20100329
  Receipt Date: 20091118
  Transmission Date: 20100710
  Serious: Yes (Other)
  Sender: FDA-Public Use
  Company Number: 2009300161

PATIENT
  Age: 60 Year
  Sex: Male

DRUGS (3)
  1. GEODON [Suspect]
  2. PROLIXIN [Concomitant]
  3. DEPAKOTE [Concomitant]

REACTIONS (2)
  - BLOOD GLUCOSE INCREASED [None]
  - MALAISE [None]
